FAERS Safety Report 4788661-9 (Version None)
Quarter: 2005Q4

REPORT INFORMATION
  Report Type: 
  Country: None (occurrence: None)
  Receive Date: 20051005
  Receipt Date: 20050701
  Transmission Date: 20060501
  Serious: Yes (Other)
  Sender: FDA-Public Use
  Company Number: DE-GLAXOSMITHKLINE-D0046995A

PATIENT
  Age: 39 Year
  Sex: Female
  Weight: 84 kg

DRUGS (1)
  1. MALARONE [Suspect]
     Dosage: 1TAB PER DAY
     Route: 048
     Dates: start: 20050510, end: 20050603

REACTIONS (2)
  - ABORTION INDUCED [None]
  - DIARRHOEA [None]
